FAERS Safety Report 6716625-4 (Version None)
Quarter: 2010Q2

REPORT INFORMATION
  Report Type: 
  Country: None (occurrence: None)
  Receive Date: 20100507
  Receipt Date: 20100430
  Transmission Date: 20101027
  Serious: Yes (Death, Other)
  Sender: FDA-Public Use
  Company Number: BR-ROCHE-700749

PATIENT
  Age: 25 Year
  Sex: Female

DRUGS (1)
  1. TAMIFLU [Suspect]
     Route: 065
     Dates: start: 20100413, end: 20100401

REACTIONS (3)
  - CARDIAC ARREST [None]
  - RESPIRATORY DISORDER [None]
  - RESPIRATORY FAILURE [None]
